FAERS Safety Report 11772737 (Version 1)
Quarter: 2015Q4

REPORT INFORMATION
  Report Type: Spontaneous
  Country: US (occurrence: US)
  Receive Date: 20151124
  Receipt Date: 20151124
  Transmission Date: 20160304
  Serious: Yes (Life-Threatening, Other)
  Sender: FDA-Public Use
  Company Number: US-MALLINCKRODT-T201505113

PATIENT
  Age: 46 Year
  Sex: Female

DRUGS (4)
  1. GABLOFEN [Suspect]
     Active Substance: BACLOFEN
     Dosage: 24 MCG/DAY
     Route: 037
     Dates: end: 201510
  2. GABLOFEN [Suspect]
     Active Substance: BACLOFEN
     Dosage: 24 MCG/DAY
     Route: 037
     Dates: start: 20151030
  3. GABLOFEN [Suspect]
     Active Substance: BACLOFEN
     Indication: MUSCLE SPASTICITY
     Dosage: 37.5 MCG/DAY
     Route: 037
     Dates: start: 20151029, end: 20151030
  4. GABLOFEN [Suspect]
     Active Substance: BACLOFEN
     Dosage: 50 MCG/DAY
     Route: 037
     Dates: start: 201510, end: 20151029

REACTIONS (5)
  - Cardio-respiratory arrest [Unknown]
  - Hypotonia [Unknown]
  - Drug withdrawal syndrome [Unknown]
  - Dyspnoea [Unknown]
  - Device leakage [Unknown]

NARRATIVE: CASE EVENT DATE: 201510
